FAERS Safety Report 6434100-1 (Version None)
Quarter: 2009Q4

REPORT INFORMATION
  Report Type: 
  Country: None (occurrence: None)
  Receive Date: 20091110
  Receipt Date: 20090806
  Transmission Date: 20100525
  Serious: No
  Sender: FDA-Public Use
  Company Number: US-ASTRAZENECA-2009SE12576

PATIENT
  Sex: Female

DRUGS (5)
  1. PRILOSEC OTC [Suspect]
     Indication: DYSPEPSIA
     Dosage: 1 TABLET, 1 /DAY
     Route: 048
     Dates: start: 20090701, end: 20090719
  2. CELEBREX [Concomitant]
     Dosage: UNKNOWN
  3. SINGULAIR [Concomitant]
     Dosage: UNKNOWN
  4. ALBUTEROL [Concomitant]
     Dosage: UNKNOWN
  5. FISH OIL [Concomitant]
     Dosage: UNKNOWN

REACTIONS (2)
  - DRUG INEFFECTIVE [None]
  - DYSPEPSIA [None]
